FAERS Safety Report 12704149 (Version 1)
Quarter: 2016Q3

REPORT INFORMATION
  Report Type: Spontaneous
  Country: CA (occurrence: CA)
  Receive Date: 20160831
  Receipt Date: 20160831
  Transmission Date: 20161109
  Serious: Yes (Other)
  Sender: FDA-Public Use
  Company Number: CA-CONCORDIA PHARMACEUTICALS INC.-CO-PL-CA-2016-445

PATIENT
  Age: 75 Year
  Sex: Female

DRUGS (10)
  1. SULFASALAZINE. [Concomitant]
     Active Substance: SULFASALAZINE
  2. CELEBREX [Concomitant]
     Active Substance: CELECOXIB
  3. REMICADE [Concomitant]
     Active Substance: INFLIXIMAB
     Dates: start: 20130616, end: 20140429
  4. ARAVA [Concomitant]
     Active Substance: LEFLUNOMIDE
     Dates: start: 20110614
  5. RITUXAN [Concomitant]
     Active Substance: RITUXIMAB
     Dates: start: 20141127, end: 20151228
  6. ENBREL [Suspect]
     Active Substance: ETANERCEPT
     Indication: RHEUMATOID ARTHRITIS
     Route: 065
     Dates: start: 200610, end: 201107
  7. METHOTREXATE. [Concomitant]
     Active Substance: METHOTREXATE
     Dates: start: 2000, end: 20010714
  8. PLAQUENIL [Suspect]
     Active Substance: HYDROXYCHLOROQUINE SULFATE
     Route: 065
     Dates: start: 2000, end: 20081021
  9. ORENCIA [Concomitant]
     Active Substance: ABATACEPT
     Dates: start: 20111228, end: 20130411
  10. XELJANZ [Concomitant]
     Active Substance: TOFACITINIB CITRATE
     Dates: start: 20160615

REACTIONS (2)
  - Cataract [Unknown]
  - Drug ineffective [Unknown]
